FAERS Safety Report 23685952 (Version 1)
Quarter: 2024Q1

REPORT INFORMATION
  Report Type: Other
  Country: CN (occurrence: None)
  Receive Date: 20240329
  Receipt Date: 20240329
  Transmission Date: 20240410
  Serious: Yes (Death, Other)
  Sender: FDA-Public Use
  Company Number: CN-ROCHE-3530178

PATIENT
  Age: 59 Year
  Sex: Male
  Weight: 63 kg

DRUGS (2)
  1. POLIVY [Suspect]
     Active Substance: POLATUZUMAB VEDOTIN-PIIQ
     Indication: Diffuse large B-cell lymphoma
     Dosage: 140 MG PER VIAL PRECONDITIONING ONLY 1 TIME
     Route: 041
     Dates: start: 20240306, end: 20240306
  2. COLUMVI [Suspect]
     Active Substance: GLOFITAMAB-GXBM
     Indication: Diffuse large B-cell lymphoma
     Dosage: 10 MG PER VIAL
     Route: 041
     Dates: start: 20240312, end: 20240312

REACTIONS (6)
  - Pneumonitis [Fatal]
  - Respiratory failure [Fatal]
  - Tumour invasion [Unknown]
  - Oxygen saturation decreased [Unknown]
  - Pneumonia bacterial [Unknown]
  - Pneumonia fungal [Unknown]

NARRATIVE: CASE EVENT DATE: 20240306
